FAERS Safety Report 23639251 (Version 1)
Quarter: 2024Q1

REPORT INFORMATION
  Report Type: Report from Study
  Country: US (occurrence: US)
  Receive Date: 20240316
  Receipt Date: 20240316
  Transmission Date: 20240409
  Serious: Yes (Other)
  Sender: FDA-Public Use
  Company Number: US-ABBVIE-5675273

PATIENT
  Age: 63 Year
  Sex: Female
  Weight: 101.15 kg

DRUGS (1)
  1. DEPAKOTE [Suspect]
     Active Substance: DIVALPROEX SODIUM
     Indication: Seizure
     Dosage: FORM STRENGTH: 500 MILLIGRAM?START DATE TEXT: 30 YEARS AGO
     Route: 048
     Dates: start: 1994

REACTIONS (4)
  - Spinal disorder [Unknown]
  - Sinusitis [Unknown]
  - Ear pain [Recovered/Resolved]
  - Facial pain [Recovered/Resolved]

NARRATIVE: CASE EVENT DATE: 20240311
